FAERS Safety Report 4869445-X (Version None)
Quarter: 2005Q4

REPORT INFORMATION
  Report Type: 
  Country: None (occurrence: None)
  Receive Date: 20051230
  Receipt Date: 20050829
  Transmission Date: 20060501
  Serious: Yes (Hospitalization)
  Sender: FDA-Public Use
  Company Number: US-MERCK-0508USA05052

PATIENT
  Age: 76 Year
  Sex: Male
  Weight: 102 kg

DRUGS (3)
  1. VIOXX [Suspect]
     Indication: HEADACHE
     Route: 048
     Dates: start: 20030421, end: 20040930
  2. ALLOPURINOL [Concomitant]
     Route: 065
  3. CARDIZEM CD [Concomitant]
     Indication: CHEST PAIN
     Route: 065

REACTIONS (20)
  - ACUTE CORONARY SYNDROME [None]
  - ACUTE MYOCARDIAL INFARCTION [None]
  - ARTHROPATHY [None]
  - ATRIAL FIBRILLATION [None]
  - AZOTAEMIA [None]
  - BACK DISORDER [None]
  - CARDIAC FAILURE CONGESTIVE [None]
  - DYSPNOEA [None]
  - EJECTION FRACTION DECREASED [None]
  - FALL [None]
  - GASTROINTESTINAL HAEMORRHAGE [None]
  - HEART VALVE INSUFFICIENCY [None]
  - HYPOXIA [None]
  - ISCHAEMIC CARDIOMYOPATHY [None]
  - PNEUMONIA [None]
  - PULMONARY OEDEMA [None]
  - RENAL FAILURE [None]
  - RESPIRATORY FAILURE [None]
  - SUBMANDIBULAR MASS [None]
  - VENTRICULAR EXTRASYSTOLES [None]
